FAERS Safety Report 9603430 (Version 3)
Quarter: 2013Q4

REPORT INFORMATION
  Report Type: Report from Study
  Country: US (occurrence: US)
  Receive Date: 20131007
  Receipt Date: 20131010
  Transmission Date: 20140711
  Serious: Yes (Hospitalization)
  Sender: FDA-Public Use
  Company Number: US-TEVA-392592USA

PATIENT
  Age: 74 Year
  Sex: Female

DRUGS (36)
  1. FLUOROURACIL [Suspect]
     Indication: NEOPLASM
     Dosage: INFUSION OVER DAYS 1-3 AND 15-17 OF 28 DAY CYCLE (2400 MG/M2)
     Route: 042
     Dates: start: 20100407, end: 20121030
  2. FOLINIC ACID [Suspect]
     Indication: NEOPLASM
     Dosage: ON DAYS 1 AND 15 OF 28 DAY CYCLE (400 MG/M2)
     Route: 042
     Dates: start: 20100407, end: 20121030
  3. IRINOTECAN [Suspect]
     Indication: NEOPLASM
     Dosage: 300 MG/M2 DAILY; ON DAYS 1 AND 15 OF 28 DAY CYCLE (150 MG/M2)
     Route: 042
     Dates: start: 20100407, end: 20121020
  4. ABT-888 (VELIPARIB) [Suspect]
     Indication: NEOPLASM
     Dosage: 40 MILLIGRAM DAILY; ON DAYS 1-5 AND 15-19 OF 28 DAY CYCLE (20 MG,2 IN 1 D)
     Route: 048
     Dates: start: 20100505, end: 20121020
  5. ATIVAN [Concomitant]
     Indication: NAUSEA
     Dosage: 1 MG OF 2 MG/ML EVERY 4 HOURS AS REQUIRED
     Dates: start: 20100407
  6. ATIVAN [Concomitant]
     Indication: ANXIETY
     Dosage: 1MG OF 2MG/ML EVERY
     Dates: start: 20100630
  7. ATIVAN [Concomitant]
     Indication: PROPHYLAXIS OF NAUSEA AND VOMITING
  8. ATIVAN [Concomitant]
     Indication: VOMITING
  9. ATROPINE SULFATE [Concomitant]
     Indication: PROPHYLAXIS
     Dosage: .0357 MG/ML DAILY;
     Dates: start: 20100407
  10. COMPAZINE [Concomitant]
     Indication: PROPHYLAXIS OF NAUSEA AND VOMITING
     Dates: start: 20100407
  11. DEXAMETHASONE [Concomitant]
     Indication: PROPHYLAXIS OF NAUSEA AND VOMITING
     Dosage: .7143 MILLIGRAM DAILY;
     Dates: start: 20100407
  12. IBUPROFEN [Concomitant]
     Indication: ARTHRALGIA
     Dates: start: 2009
  13. IBUPROFEN [Concomitant]
     Indication: BACK PAIN
  14. IBUPROFEN [Concomitant]
     Indication: ARTHRALGIA
  15. LOPERAMIDE [Concomitant]
     Indication: PROPHYLAXIS AGAINST DIARRHOEA
     Dates: start: 20100407
  16. NORMAL SALINE [Concomitant]
     Indication: MUCOSAL INFLAMMATION
     Dosage: 2 TABLESPOONS 4 TIMES/DAY (AS REQUIRED)
     Dates: start: 20100426
  17. VITAMIN D3 [Concomitant]
     Indication: GENERAL PHYSICAL CONDITION
     Dosage: 1600 IU (INTERNATIONAL UNIT) DAILY;
     Dates: start: 2006
  18. VITAMIN D3 [Concomitant]
     Indication: ROUTINE HEALTH MAINTENANCE
  19. PERICOLASE [Concomitant]
     Indication: CONSTIPATION
     Dosage: HS- 2 TABLS
     Dates: start: 2005
  20. MAGIC MOUTH WASH [Concomitant]
     Dosage: 1 TABLESPOON (AS REQUIRED)
     Dates: start: 20100627
  21. NEULASTA [Concomitant]
     Indication: PROPHYLAXIS
     Dosage: 6MG/0.6ML (1 IN 2 WK)
     Dates: start: 20100730
  22. PRILOSEC  OTC [Concomitant]
     Indication: GASTROOESOPHAGEAL REFLUX DISEASE
     Dosage: DAILY (20 MG,AS REQUIRED)
     Dates: start: 20100825
  23. CORICIDIN [Concomitant]
     Indication: SEASONAL ALLERGY
     Dates: start: 20110112
  24. ACETAMINOPHEN [Concomitant]
     Indication: UPPER RESPIRATORY TRACT IRRITATION
     Dates: start: 20111001
  25. ACETAMINOPHEN [Concomitant]
     Indication: PYREXIA
  26. ACETAMINOPHEN [Concomitant]
     Indication: BACK PAIN
  27. ADVIL [Concomitant]
     Indication: HEADACHE
  28. ADVIL [Concomitant]
     Indication: PAIN IN EXTREMITY
  29. ADVIL [Concomitant]
     Indication: MUSCLE STRAIN
  30. CALCIUM 1000 WITH MAGNESIUM [Concomitant]
     Indication: ROUTINE HEALTH MAINTENANCE
     Dosage: 1 DOSAGE FORMS DAILY;
     Dates: start: 20111003
  31. COLACE [Concomitant]
     Indication: CONSTIPATION
     Dosage: 100-200MG (AS REQUIRED)
     Dates: start: 2005
  32. LIP BALM [Concomitant]
     Indication: MUCOSAL INFLAMMATION
     Route: 061
     Dates: start: 20100621
  33. LIP BALM [Concomitant]
     Indication: CHEILITIS
  34. KYTRIL [Concomitant]
     Indication: NAUSEA
     Dosage: 2 MILLIGRAM DAILY;
     Dates: start: 20100908
  35. KYTRIL [Concomitant]
     Indication: VOMITING
  36. BACTROBAN [Concomitant]
     Indication: CHEILITIS
     Dosage: 1 APPLICATION (2 IN 1 D)
     Dates: start: 20120201

REACTIONS (1)
  - Pyrexia [Recovered/Resolved]
